FAERS Safety Report 7446124-6 (Version None)
Quarter: 2011Q2

REPORT INFORMATION
  Report Type: 
  Country: None (occurrence: None)
  Receive Date: 20110429
  Receipt Date: 20110422
  Transmission Date: 20111010
  Serious: Yes (Other)
  Sender: FDA-Public Use
  Company Number: A0924218A

PATIENT
  Age: 38 Year
  Sex: Male

DRUGS (12)
  1. MARINOL [Concomitant]
  2. NORCO [Concomitant]
  3. TESTIM [Concomitant]
  4. SULAR [Concomitant]
  5. ALPRAZOLAM [Concomitant]
  6. EPZICOM [Suspect]
     Indication: HIV INFECTION
     Dosage: 1TAB PER DAY
     Route: 048
     Dates: start: 20100701, end: 20110322
  7. PRAVASTATIN [Concomitant]
  8. FAMCICLOVIR [Concomitant]
  9. ACIPHEX [Concomitant]
  10. LAMOTRIGINE [Concomitant]
  11. LISINOPRIL [Concomitant]
  12. ONDANSETRON [Concomitant]

REACTIONS (9)
  - ASTHENIA [None]
  - VOMITING [None]
  - NAUSEA [None]
  - FATIGUE [None]
  - DIARRHOEA [None]
  - MALAISE [None]
  - NEUROPATHY PERIPHERAL [None]
  - DYSPNOEA [None]
  - HEADACHE [None]
